FAERS Safety Report 4318320-8 (Version None)
Quarter: 2004Q1

REPORT INFORMATION
  Report Type: 
  Country: None (occurrence: None)
  Receive Date: 20040317
  Receipt Date: 20040311
  Transmission Date: 20041129
  Serious: Yes (Hospitalization)
  Sender: FDA-Public Use
  Company Number: WAES 0403ESP00026

PATIENT
  Age: 82 Year
  Sex: Male

DRUGS (8)
  1. AMOXICILLIN AND CLAVULANATE POTASSIUM [Concomitant]
  2. INVANZ [Suspect]
     Indication: DIVERTICULITIS
     Route: 042
     Dates: start: 20040223, end: 20040301
  3. INVANZ [Suspect]
     Indication: SUSPICIOUSNESS
     Route: 042
     Dates: start: 20040223, end: 20040301
  4. URBASON [Concomitant]
     Route: 042
     Dates: start: 20040201
  5. PANTOPRAZOLE [Concomitant]
     Indication: HIATUS HERNIA
  6. PANTOPRAZOLE [Concomitant]
     Indication: GASTRITIS EROSIVE
  7. DACORTIN [Concomitant]
     Route: 048
     Dates: end: 20040201
  8. OMNIC [Concomitant]
     Route: 048
     Dates: end: 20040201

REACTIONS (6)
  - CEREBRAL ATROPHY [None]
  - CONFUSIONAL STATE [None]
  - ECCHYMOSIS [None]
  - PNEUMONIA ASPIRATION [None]
  - PURPURA [None]
  - THROMBOCYTOPENIA [None]
